FAERS Safety Report 4716564-4 (Version None)
Quarter: 2005Q3

REPORT INFORMATION
  Report Type: 
  Country: None (occurrence: None)
  Receive Date: 20050719
  Receipt Date: 20050617
  Transmission Date: 20060218
  Serious: Yes (Hospitalization)
  Sender: FDA-Public Use
  Company Number: PHNU2005SI02297

PATIENT
  Age: 78 Year
  Sex: Male
  Weight: 81 kg

DRUGS (6)
  1. EXELON [Suspect]
     Indication: DEMENTIA ALZHEIMER'S TYPE
     Dosage: 4.5 MG, BID
     Route: 048
     Dates: start: 20041006, end: 20050312
  2. EXELON [Suspect]
     Dosage: 4.5 MG, TID
     Route: 048
     Dates: start: 20050313, end: 20050525
  3. AMLOPIN [Concomitant]
     Dosage: 5 MG/DAY
     Route: 048
  4. DEVIDON [Concomitant]
     Dosage: 150 MG/DAY
     Route: 048
  5. KORNAM [Concomitant]
     Dosage: 1 TABLET/DAY
     Route: 048
  6. PROSTIDE [Concomitant]
     Dosage: 1 TABLET/DAY
     Route: 048

REACTIONS (4)
  - ACCIDENTAL OVERDOSE [None]
  - BRADYCARDIA [None]
  - MEDICATION ERROR [None]
  - SYNCOPE [None]
